FAERS Safety Report 16338327 (Version 1)
Quarter: 2019Q2

REPORT INFORMATION
  Report Type: Spontaneous
  Country: CN (occurrence: CN)
  Receive Date: 20190521
  Receipt Date: 20190521
  Transmission Date: 20190711
  Serious: Yes (Other)
  Sender: FDA-Public Use
  Company Number: CN-BAYER-2019-097745

PATIENT
  Age: 47 Year
  Sex: Male

DRUGS (1)
  1. ULTRAVIST [Suspect]
     Active Substance: IOPROMIDE
     Indication: ANGIOCARDIOGRAM
     Dosage: UNK UNK, ONCE
     Route: 042
     Dates: start: 20190516, end: 20190516

REACTIONS (6)
  - Blood pressure decreased [Recovered/Resolved]
  - Heart rate decreased [Recovering/Resolving]
  - Unresponsive to stimuli [Recovering/Resolving]
  - Indifference [Recovering/Resolving]
  - Pyrexia [Recovering/Resolving]
  - Muscle twitching [Recovering/Resolving]

NARRATIVE: CASE EVENT DATE: 20190516
